FAERS Safety Report 8568956-3 (Version None)
Quarter: 2012Q3

REPORT INFORMATION
  Report Type: 
  Country: None (occurrence: None)
  Receive Date: 20120803
  Receipt Date: 20120316
  Transmission Date: 20120928
  Serious: No
  Sender: FDA-Public Use
  Company Number: US-ABBOTT-12P-163-0916227-00

PATIENT
  Weight: 85.806 kg

DRUGS (1)
  1. NIASPAN [Suspect]
     Indication: BLOOD CHOLESTEROL
     Dates: start: 20080101, end: 20080101

REACTIONS (5)
  - PRURITUS [None]
  - FEELING HOT [None]
  - BURNING SENSATION [None]
  - FLUSHING [None]
  - ERYTHEMA [None]
